FAERS Safety Report 4632792-0 (Version None)
Quarter: 2005Q2

REPORT INFORMATION
  Report Type: 
  Country: None (occurrence: None)
  Receive Date: 20050411
  Receipt Date: 20050411
  Transmission Date: 20051028
  Serious: Yes (Other)
  Sender: FDA-Public Use
  Company Number: None

PATIENT
  Age: 44 Year
  Sex: Female

DRUGS (5)
  1. FENTANYL [Suspect]
     Indication: PAIN
     Dosage: 75 MCG Q2D TRANSDERMAL
     Route: 062
     Dates: start: 20050302, end: 20050331
  2. ZOLOFT [Concomitant]
  3. PREMARIN [Concomitant]
  4. PHENTERMINE [Concomitant]
  5. HYDROCODONE BITARTRATE + ACETAMINOPHEN [Concomitant]

REACTIONS (2)
  - DIZZINESS [None]
  - PHARMACEUTICAL PRODUCT COMPLAINT [None]
